FAERS Safety Report 20409985 (Version 1)
Quarter: 2022Q1

REPORT INFORMATION
  Report Type: Spontaneous
  Country: US (occurrence: US)
  Receive Date: 20220201
  Receipt Date: 20220201
  Transmission Date: 20220423
  Serious: No
  Sender: FDA-Public Use
  Company Number: US-SA-SAC20220128000178

PATIENT
  Age: 59 Year
  Sex: Female

DRUGS (2)
  1. KEVZARA [Suspect]
     Active Substance: SARILUMAB
     Indication: Rheumatoid arthritis
     Dosage: 200 MG, QOW
     Route: 058
     Dates: start: 20180403
  2. VERZENIO [Concomitant]
     Active Substance: ABEMACICLIB
     Indication: Breast cancer female
     Dosage: UNK
     Dates: end: 20220114

REACTIONS (1)
  - Platelet disorder [Unknown]

NARRATIVE: CASE EVENT DATE: 20220114
